FAERS Safety Report 9146199 (Version 1)
Quarter: 2013Q1

REPORT INFORMATION
  Report Type: Spontaneous
  Country: US (occurrence: US)
  Receive Date: 20130307
  Receipt Date: 20130307
  Transmission Date: 20140127
  Serious: Yes (Other)
  Sender: FDA-Public Use
  Company Number: PHEH2013US005322

PATIENT
  Sex: 0

DRUGS (1)
  1. GLEEVEC [Suspect]
     Dosage: UNK UKN, UNK

REACTIONS (4)
  - Bundle branch block [Unknown]
  - Electrocardiogram QT prolonged [Unknown]
  - Fluid retention [Recovered/Resolved]
  - Oedema [Recovered/Resolved]
